FAERS Safety Report 6286153-1 (Version None)
Quarter: 2009Q3

REPORT INFORMATION
  Report Type: 
  Country: None (occurrence: None)
  Receive Date: 20090716
  Receipt Date: 20090505
  Transmission Date: 20100115
  Serious: Yes (Other)
  Sender: FDA-Public Use
  Company Number: 2009BI012774

PATIENT
  Sex: Male

DRUGS (3)
  1. AVONEX [Suspect]
     Indication: MULTIPLE SCLEROSIS
     Dosage: 7.5 MG;QW;IM
     Route: 030
     Dates: start: 20070201, end: 20080801
  2. CON MEDS [Concomitant]
  3. PREV MEDS [Concomitant]

REACTIONS (4)
  - FALL [None]
  - HEPATIC ENZYME INCREASED [None]
  - INFLUENZA LIKE ILLNESS [None]
  - QUALITY OF LIFE DECREASED [None]
